FAERS Safety Report 7820252 (Version 2)
Quarter: 2013Q3

REPORT INFORMATION
  Report Type: Report from Study
  Country: BE (occurrence: BE)
  Receive Date: 20110221
  Receipt Date: 20130812
  Transmission Date: 20140515
  Serious: Yes (Death)
  Sender: FDA-Public Use
  Company Number: BE-ROCHE-759594

PATIENT
  Sex: Male
  Weight: 75 kg

DRUGS (15)
  1. OSELTAMIVIR [Suspect]
     Indication: INFLUENZA
     Route: 042
     Dates: start: 20110127, end: 20110209
  2. NOREPINEPHRINE [Suspect]
     Indication: HYPOTENSION
     Dosage: DRUG: LEVOPHED; DOSE: 100-400 GAMMA; FREQUENCY: CONTINUOUS
     Route: 042
     Dates: start: 20110127, end: 20110209
  3. BICLAR [Concomitant]
     Indication: ATYPICAL PNEUMONIA
     Route: 042
     Dates: start: 20110126, end: 20110128
  4. CEFTRIAXONE [Concomitant]
     Indication: BACTERIAL INFECTION
     Dosage: INDICATION: BACTERIAL SURINFECTION
     Route: 042
     Dates: start: 20110126, end: 20110201
  5. DOBUTREX [Concomitant]
     Indication: MYOCARDIAL DEPRESSION
     Dosage: DOSE: 20 GAMMA; FREQUENCY: CONTINUOUS
     Route: 042
     Dates: start: 20110127, end: 20110209
  6. CIPROXINE [Concomitant]
     Indication: NOSOCOMIAL INFECTION
     Dosage: INDICATION: NOSOCOMIAL SUPRA-INFECTION
     Route: 042
     Dates: start: 20110209, end: 20110209
  7. CEFTAZIDIME [Concomitant]
     Indication: NOSOCOMIAL INFECTION
     Dosage: INDICATION: NOSOCOMIAL SUPRA-INFECTION
     Route: 042
     Dates: start: 20110131, end: 20110202
  8. MERONEM [Concomitant]
     Indication: NOSOCOMIAL INFECTION
     Route: 042
     Dates: start: 20110202, end: 20110209
  9. VANCOMYCINE [Concomitant]
     Indication: NOSOCOMIAL INFECTION
     Dosage: INDICATION: NOSOCOMIAL SUPRA-INFECTION; FREQUENCY: CONTINUOUS
     Route: 042
     Dates: start: 20110131, end: 20110209
  10. AMIKACINE [Concomitant]
     Indication: NOSOCOMIAL INFECTION
     Dosage: DRUG: AMUKAN/ AMIKACINE; INDICATION: NOSOCOMIAL SUPRA-INFECTION
     Route: 042
     Dates: start: 20110209, end: 20110209
  11. CORDARONE [Concomitant]
     Indication: ATRIAL FIBRILLATION
     Dosage: FREQUENCY: CONTINUOUS
     Route: 042
     Dates: start: 20110205, end: 20110207
  12. AMBISOME [Concomitant]
     Route: 042
     Dates: start: 20110201, end: 20110204
  13. AMBISOME [Concomitant]
     Dosage: INDICATION: SUSPICION OF INVASIVE ASPERGILLOSIS
     Route: 042
  14. NIMBEX (BELGIUM) [Concomitant]
     Dosage: INDICATION: CURARE TO INCREASE VENTILATION; DOSE: 4-12 MG/H; FREQUENCY: CONTINUOUS
     Route: 042
     Dates: start: 20110127, end: 20110209
  15. TAMIFLU [Concomitant]
     Indication: INFLUENZA
     Route: 048
     Dates: start: 20110127, end: 20110128

REACTIONS (2)
  - Intestinal ischaemia [Fatal]
  - Peritoneal necrosis [Fatal]
